FAERS Safety Report 14149933 (Version 4)
Quarter: 2017Q4

REPORT INFORMATION
  Report Type: Spontaneous
  Country: US (occurrence: US)
  Receive Date: 20171101
  Receipt Date: 20171226
  Transmission Date: 20180321
  Serious: Yes (Hospitalization, Disabling, Other)
  Sender: FDA-Public Use
  Company Number: US-AMGEN-USASP2017161507

PATIENT
  Age: 76 Year
  Sex: Male
  Weight: 92.52 kg

DRUGS (9)
  1. REPATHA [Suspect]
     Active Substance: EVOLOCUMAB
     Indication: BLOOD CHOLESTEROL INCREASED
     Dosage: 140 MG, UNK
     Route: 065
     Dates: start: 201610, end: 201711
  2. SPIRONOLACTONE. [Concomitant]
     Active Substance: SPIRONOLACTONE
     Dosage: 15 MG, QD
  3. LIVALO [Concomitant]
     Active Substance: PITAVASTATIN CALCIUM
     Dosage: 2 MG, UNK
  4. NEURO [Concomitant]
  5. FUROSEMIDE. [Concomitant]
     Active Substance: FUROSEMIDE
     Dosage: 20 MG, QD
  6. VALTREX [Concomitant]
     Active Substance: VALACYCLOVIR HYDROCHLORIDE
     Dosage: 1 G, UNK
  7. NITROGLYCERIN. [Concomitant]
     Active Substance: NITROGLYCERIN
     Dosage: 0.4 MG, AS NECESSARY
  8. BISOPROLOL [Concomitant]
     Active Substance: BISOPROLOL
  9. CIPRO [Concomitant]
     Active Substance: CIPROFLOXACIN HYDROCHLORIDE

REACTIONS (15)
  - Gastritis [Unknown]
  - Muscular weakness [Recovering/Resolving]
  - Wrist fracture [Unknown]
  - Foot fracture [Unknown]
  - Stenosis [Not Recovered/Not Resolved]
  - Chronic inflammatory demyelinating polyradiculoneuropathy [Not Recovered/Not Resolved]
  - Post laminectomy syndrome [Unknown]
  - Arthralgia [Unknown]
  - Peripheral nerve injury [Unknown]
  - Fall [Unknown]
  - Lumbar spinal stenosis [Unknown]
  - Musculoskeletal pain [Recovering/Resolving]
  - Mobility decreased [Unknown]
  - Rotator cuff syndrome [Unknown]
  - Tendon rupture [Unknown]

NARRATIVE: CASE EVENT DATE: 20171006
